FAERS Safety Report 25418261 (Version 3)
Quarter: 2025Q4

REPORT INFORMATION
  Report Type: Spontaneous
  Country: BR (occurrence: None)
  Receive Date: 20250610
  Receipt Date: 20251119
  Transmission Date: 20260118
  Serious: Yes (Disabling)
  Sender: AMERICAN REGENT
  Company Number: BR-AMERICAN REGENT INC-2025002295

PATIENT
  Age: 44 Year
  Sex: Female
  Weight: 56 kg

DRUGS (2)
  1. VENOFER [Suspect]
     Active Substance: IRON SUCROSE
     Indication: Mineral supplementation
     Dosage: 2 AMPOULES
     Dates: start: 20241224, end: 20241224
  2. VENOFER [Suspect]
     Active Substance: IRON SUCROSE
     Dosage: 1 AMPOULES
     Dates: start: 20250418, end: 20250424

REACTIONS (27)
  - Blood brain barrier defect [Not Recovered/Not Resolved]
  - Immunodeficiency [Not Recovered/Not Resolved]
  - Arrhythmia [Not Recovered/Not Resolved]
  - Electric shock sensation [Not Recovered/Not Resolved]
  - Exploding head syndrome [Not Recovered/Not Resolved]
  - Nervous system disorder [Not Recovered/Not Resolved]
  - General physical health deterioration [Not Recovered/Not Resolved]
  - Sensory disturbance [Not Recovered/Not Resolved]
  - Brain fog [Not Recovered/Not Resolved]
  - Formication [Not Recovered/Not Resolved]
  - Impaired quality of life [Not Recovered/Not Resolved]
  - Insomnia [Not Recovered/Not Resolved]
  - Weight decreased [Not Recovered/Not Resolved]
  - Tremor [Not Recovered/Not Resolved]
  - Breast pain [Not Recovered/Not Resolved]
  - Palpitations [Not Recovered/Not Resolved]
  - Insomnia [Not Recovered/Not Resolved]
  - Neuralgia [Not Recovered/Not Resolved]
  - Premature ageing [Not Recovered/Not Resolved]
  - Hallucination [Not Recovered/Not Resolved]
  - Blood test abnormal [Not Recovered/Not Resolved]
  - Skin discolouration [Not Recovered/Not Resolved]
  - Skin burning sensation [Not Recovered/Not Resolved]
  - Paraesthesia [Not Recovered/Not Resolved]
  - Paraesthesia [Not Recovered/Not Resolved]
  - Poor quality product administered [Not Recovered/Not Resolved]
  - Product contamination physical [Not Recovered/Not Resolved]

NARRATIVE: CASE EVENT DATE: 20241224
